FAERS Safety Report 6543718-7 (Version None)
Quarter: 2010Q1

REPORT INFORMATION
  Report Type: 
  Country: None (occurrence: None)
  Receive Date: 20100120
  Receipt Date: 20100111
  Transmission Date: 20100710
  Serious: Yes (Other)
  Sender: FDA-Public Use
  Company Number: DE-ABBOTT-10P-062-0618307-00

PATIENT
  Sex: Female

DRUGS (1)
  1. EPROSARTAN-RATIOPHARM COMP 600 MG/12.5MG FILMTABLETTEN [Suspect]
     Indication: DRUG USE FOR UNKNOWN INDICATION
     Dosage: 600 MG/12.5 MG
     Route: 048

REACTIONS (3)
  - ANXIETY [None]
  - DYSPNOEA [None]
  - HYPERHIDROSIS [None]
